FAERS Safety Report 4750998-7 (Version None)
Quarter: 2005Q3

REPORT INFORMATION
  Report Type: 
  Country: None (occurrence: None)
  Receive Date: 20050822
  Receipt Date: 20050810
  Transmission Date: 20060218
  Serious: Yes (Death)
  Sender: FDA-Public Use
  Company Number: 2005-02929

PATIENT
  Age: 2 Year
  Sex: Female

DRUGS (2)
  1. OXYCODONE HYDROCHLORIDE/APAP (WATSON)(ACETAMINOPHEN, OXYCODONE HYDROCH [Suspect]
     Indication: ACCIDENTAL EXPOSURE
     Dosage: ORAL
     Route: 048
  2. OXYCODONE HYDROCHLORIDE/APAP (WATSON)(ACETAMINOPHEN, OXYCODONE HYDROCH [Suspect]
     Indication: HOMICIDAL IDEATION
     Dosage: ORAL
     Route: 048

REACTIONS (12)
  - ABDOMINAL PAIN [None]
  - ACCIDENTAL DRUG INTAKE BY CHILD [None]
  - BRONCHITIS ACUTE [None]
  - BRONCHOPNEUMONIA [None]
  - CARDIO-RESPIRATORY ARREST [None]
  - COORDINATION ABNORMAL [None]
  - FATIGUE [None]
  - GAIT DISTURBANCE [None]
  - LOSS OF CONSCIOUSNESS [None]
  - NARCOTIC INTOXICATION [None]
  - ORAL DISCOMFORT [None]
  - TOXICOLOGIC TEST ABNORMAL [None]
